FAERS Safety Report 5601647-7 (Version None)
Quarter: 2008Q1

REPORT INFORMATION
  Report Type: 
  Country: None (occurrence: None)
  Receive Date: 20080124
  Receipt Date: 20070516
  Transmission Date: 20080703
  Serious: No
  Sender: FDA-Public Use
  Company Number: US-BOEHRINGER INGELHEIM PHARMACEUTICALS, INC.-2007-BP-07710BP

PATIENT
  Age: 41 Year
  Sex: Female

DRUGS (1)
  1. METACAM ORAL SUSPENSION [Suspect]
     Route: 031
     Dates: start: 20070515, end: 20070515

REACTIONS (2)
  - ACCIDENTAL EXPOSURE [None]
  - DRY EYE [None]
